FAERS Safety Report 5678049-0 (Version None)
Quarter: 2008Q1

REPORT INFORMATION
  Report Type: 
  Country: None (occurrence: None)
  Receive Date: 20080313
  Receipt Date: 20080310
  Transmission Date: 20080703
  Serious: Yes (Other)
  Sender: FDA-Public Use
  Company Number: GAM-054-08-GB

PATIENT
  Age: 81 Year
  Sex: Female

DRUGS (11)
  1. OCTAGAM [Suspect]
     Indication: PSEUDOMEMBRANOUS COLITIS
     Dosage: I.V.
     Route: 042
     Dates: start: 20080221, end: 20080221
  2. ASPIRIN [Concomitant]
  3. BREWERS YEAST (SACCHAROMYCES CEREVISIAE) [Concomitant]
  4. BUSCOPAN (HYOSCINE-N-BUTYLBROMIDE OD.BUTYLSCOPOLAMINIUM BROMID) [Concomitant]
  5. HYDROCORTISONE [Concomitant]
  6. MAXOLON (METOCLOPRAMIDE) [Concomitant]
  7. METRONIDAZOLE [Concomitant]
  8. PARACETEMOL (PARACETAMOL) [Concomitant]
  9. RIFAMPICIN [Concomitant]
  10. TAMOXIFEN CITRATE [Concomitant]
  11. VANCOMYCIN [Concomitant]

REACTIONS (1)
  - ATRIAL FIBRILLATION [None]
